FAERS Safety Report 24027442 (Version 1)
Quarter: 2024Q2

REPORT INFORMATION
  Report Type: Report from Study
  Country: US (occurrence: US)
  Receive Date: 20240628
  Receipt Date: 20240628
  Transmission Date: 20240715
  Serious: Yes (Death, Other)
  Sender: FDA-Public Use
  Company Number: US-ACADIA PHARMACEUTICALS INC.-ACA-2024-PIM-002711

PATIENT
  Age: 93 Year
  Sex: Female

DRUGS (10)
  1. NUPLAZID [Suspect]
     Active Substance: PIMAVANSERIN TARTRATE
     Indication: Parkinson^s disease
     Dosage: 34 MILLIGRAM, QD
     Route: 048
     Dates: start: 20230523, end: 20240529
  2. LEVOTHYROXINE [Concomitant]
     Active Substance: LEVOTHYROXINE\LEVOTHYROXINE SODIUM
     Dosage: 0.075MG
  3. DONEPEZIL [Concomitant]
     Active Substance: DONEPEZIL\DONEPEZIL HYDROCHLORIDE
     Dosage: 10 MILLIGRAM
  4. MEMANTINE [Concomitant]
     Active Substance: MEMANTINE
     Dosage: 5 MILLIGRAM
  5. TRAMADOL [Concomitant]
     Active Substance: TRAMADOL\TRAMADOL HYDROCHLORIDE
     Dosage: 50 MILLIGRAM
  6. SENNA LEAF [Concomitant]
     Active Substance: SENNA LEAF
     Dosage: 8.6MG
  7. BISACODYL [Concomitant]
     Active Substance: BISACODYL
     Dosage: 10 MILLIGRAM
  8. ALENDRONATE [Concomitant]
     Active Substance: ALENDRONATE SODIUM
     Dosage: 75 MILLIGRAM
  9. VITAMINS [Concomitant]
     Active Substance: VITAMINS
  10. TYLENOL [Concomitant]
     Active Substance: ACETAMINOPHEN

REACTIONS (1)
  - Death [Fatal]

NARRATIVE: CASE EVENT DATE: 20240529
